FAERS Safety Report 13815397 (Version 2)
Quarter: 2017Q3

REPORT INFORMATION
  Report Type: Report from Study
  Country: US (occurrence: US)
  Receive Date: 20170731
  Receipt Date: 20170817
  Transmission Date: 20171127
  Serious: Yes (Hospitalization, Other)
  Sender: FDA-Public Use
  Company Number: US-SA-2017SA110801

PATIENT
  Age: 35 Year
  Sex: Male

DRUGS (2)
  1. LEMTRADA [Suspect]
     Active Substance: ALEMTUZUMAB
     Indication: MULTIPLE SCLEROSIS
     Route: 041
     Dates: start: 20160606, end: 20160610
  2. LEMTRADA [Suspect]
     Active Substance: ALEMTUZUMAB
     Indication: MULTIPLE SCLEROSIS
     Route: 041
     Dates: start: 20170613, end: 20170615

REACTIONS (11)
  - Tremor [Not Recovered/Not Resolved]
  - Lower respiratory tract infection fungal [Unknown]
  - Feeling abnormal [Recovered/Resolved]
  - Chest discomfort [Recovered/Resolved]
  - Lung disorder [Unknown]
  - Chest pain [Recovered/Resolved]
  - Pneumonia legionella [Unknown]
  - Chest pain [Recovered/Resolved]
  - Renal disorder [Unknown]
  - Weight decreased [Unknown]
  - White blood cell count abnormal [Unknown]

NARRATIVE: CASE EVENT DATE: 2017
